FAERS Safety Report 21794743 (Version 2)
Quarter: 2023Q1

REPORT INFORMATION
  Report Type: Spontaneous
  Country: ES (occurrence: ES)
  Receive Date: 20221229
  Receipt Date: 20230315
  Transmission Date: 20230417
  Serious: Yes (Other)
  Sender: FDA-Public Use
  Company Number: ES-TEVA-2022-ES-2840279

PATIENT
  Age: 15 Year
  Sex: Male

DRUGS (3)
  1. FLUTICASONE [Suspect]
     Active Substance: FLUTICASONE
     Indication: Nasal congestion
     Dosage: USED UP TO 10 BEATS/DAY
     Route: 045
  2. ATOMOXETINE [Interacting]
     Active Substance: ATOMOXETINE
     Indication: Attention deficit hyperactivity disorder
     Dosage: 40 MILLIGRAM DAILY;
     Route: 048
  3. PSEUDOEPHEDRINE [Interacting]
     Active Substance: PSEUDOEPHEDRINE
     Indication: Nasal congestion
     Dosage: USED UP TO 10 BEATS/DAY
     Route: 045

REACTIONS (3)
  - Hypertensive crisis [Unknown]
  - Drug interaction [Unknown]
  - Intentional product misuse [Unknown]
